FAERS Safety Report 7444340-0 (Version None)
Quarter: 2011Q2

REPORT INFORMATION
  Report Type: 
  Country: None (occurrence: None)
  Receive Date: 20110427
  Receipt Date: 20110427
  Transmission Date: 20111010
  Serious: Yes (Life-Threatening, Hospitalization, Disabling)
  Sender: FDA-Public Use
  Company Number: None

PATIENT
  Age: 84 Year
  Sex: Male
  Weight: 95.5 kg

DRUGS (2)
  1. PLAVIX [Suspect]
     Indication: CEREBROVASCULAR ACCIDENT
     Dosage: 75 MG DAILY PO
     Route: 048
     Dates: start: 20110402, end: 20110402
  2. LOVENOX [Suspect]
     Dosage: 100MG Q12H SQ
     Route: 058
     Dates: start: 20110402, end: 20110403

REACTIONS (2)
  - HAEMATOMA [None]
  - HYPOTENSION [None]
